FAERS Safety Report 13772214 (Version 2)
Quarter: 2018Q3

REPORT INFORMATION
  Report Type: Spontaneous
  Country: US (occurrence: US)
  Receive Date: 20170720
  Receipt Date: 20180724
  Transmission Date: 20181010
  Serious: Yes (Other)
  Sender: FDA-Public Use
  Company Number: US-WEST-WARD PHARMACEUTICALS CORP.-US-H14001-17-02377

PATIENT
  Age: 87 Year
  Sex: Male

DRUGS (1)
  1. OCTREOTIDE. [Suspect]
     Active Substance: OCTREOTIDE
     Indication: COLON CANCER
     Dosage: PATIENT HAD RECEIVED 3 DOSES
     Route: 058

REACTIONS (2)
  - Neutropenia [Recovered/Resolved]
  - Pyrexia [Unknown]
